FAERS Safety Report 20248782 (Version 1)
Quarter: 2021Q4

REPORT INFORMATION
  Report Type: Spontaneous
  Country: US (occurrence: None)
  Receive Date: 20211228
  Receipt Date: 20211228
  Transmission Date: 20220303
  Serious: Yes (Hospitalization)
  Sender: FDA-Public Use
  Company Number: None

PATIENT
  Sex: Female

DRUGS (2)
  1. HUMIRA [Suspect]
     Active Substance: ADALIMUMAB
  2. B1 NATURAL [Concomitant]

REACTIONS (2)
  - Arthritis infective [None]
  - Therapy cessation [None]

NARRATIVE: CASE EVENT DATE: 20211101
